FAERS Safety Report 12250860 (Version 1)
Quarter: 2016Q2

REPORT INFORMATION
  Report Type: Spontaneous
  Country: US (occurrence: US)
  Receive Date: 20160409
  Receipt Date: 20160409
  Transmission Date: 20160815
  Serious: Yes (Hospitalization, Other)
  Sender: FDA-Public Use
  Company Number: US-ZYDUS-010563

PATIENT
  Age: 15 Year
  Sex: Male

DRUGS (1)
  1. SERTRALINE [Suspect]
     Active Substance: SERTRALINE HYDROCHLORIDE
     Indication: MAJOR DEPRESSION
     Dosage: 75 MG DAILY FOR 6 MONTHS
     Route: 048

REACTIONS (2)
  - Vanishing bile duct syndrome [Recovered/Resolved]
  - Drug-induced liver injury [Recovered/Resolved]
